FAERS Safety Report 4412772-0 (Version None)
Quarter: 2004Q3

REPORT INFORMATION
  Report Type: 
  Country: None (occurrence: None)
  Receive Date: 20040730
  Receipt Date: 20040730
  Transmission Date: 20050211
  Serious: No
  Sender: FDA-Public Use
  Company Number: None

PATIENT

DRUGS (2)
  1. PLAVIX [Suspect]
     Dosage: TAB LET
  2. ISOSORBIDE MONONITRATE [Suspect]
     Dosage: TABLET, EXTENDED RELEASE

REACTIONS (1)
  - MEDICATION ERROR [None]
